FAERS Safety Report 6375627-0 (Version None)
Quarter: 2009Q3

REPORT INFORMATION
  Report Type: 
  Country: None (occurrence: None)
  Receive Date: 20090924
  Receipt Date: 20090916
  Transmission Date: 20100115
  Serious: Yes (Hospitalization)
  Sender: FDA-Public Use
  Company Number: FR-ABBOTT-09P-056-0597563-00

PATIENT
  Sex: Male

DRUGS (9)
  1. HUMIRA [Suspect]
     Indication: ANKYLOSING SPONDYLITIS
     Route: 058
     Dates: start: 20070601, end: 20080601
  2. INFLIXIMAB [Suspect]
     Indication: ANKYLOSING SPONDYLITIS
     Route: 042
     Dates: start: 20021004, end: 20070601
  3. INFLIXIMAB [Suspect]
     Dates: start: 20080601
  4. APROVEL [Concomitant]
     Indication: DRUG USE FOR UNKNOWN INDICATION
  5. TEMERIT [Concomitant]
     Indication: DRUG USE FOR UNKNOWN INDICATION
  6. TRIATEC [Concomitant]
     Indication: DRUG USE FOR UNKNOWN INDICATION
  7. LASIX [Concomitant]
     Indication: DRUG USE FOR UNKNOWN INDICATION
  8. IPERTEN [Concomitant]
     Indication: DRUG USE FOR UNKNOWN INDICATION
  9. LONOTEN [Concomitant]
     Indication: DRUG USE FOR UNKNOWN INDICATION

REACTIONS (2)
  - RENAL CANCER [None]
  - RENAL FAILURE [None]
